FAERS Safety Report 6699841-X (Version None)
Quarter: 2010Q2

REPORT INFORMATION
  Report Type: 
  Country: None (occurrence: None)
  Receive Date: 20100427
  Receipt Date: 20100427
  Transmission Date: 20101027
  Serious: No
  Sender: FDA-Public Use
  Company Number: None

PATIENT
  Sex: Female
  Weight: 78.9259 kg

DRUGS (1)
  1. LISINOPRIL [Suspect]
     Dosage: 10 DAILY PO
     Route: 048

REACTIONS (1)
  - COUGH [None]
